FAERS Safety Report 11072040 (Version 2)
Quarter: 2024Q4

REPORT INFORMATION
  Report Type: Spontaneous
  Country: JP (occurrence: JP)
  Receive Date: 20150428
  Receipt Date: 20241217
  Transmission Date: 20250115
  Serious: Yes (Other)
  Sender: SANOFI AVENTIS
  Company Number: JP-SA-2015SA049887

PATIENT
  Age: 32 Year
  Sex: Female

DRUGS (7)
  1. OXALIPLATIN [Suspect]
     Active Substance: OXALIPLATIN
     Indication: Rectal cancer
     Dosage: UNK UNK,QD, INFUSION SOLUTION
     Route: 041
  2. OXALIPLATIN [Suspect]
     Active Substance: OXALIPLATIN
     Dosage: UNK, QD
     Route: 041
  3. OXALIPLATIN [Suspect]
     Active Substance: OXALIPLATIN
     Dosage: UNK, QD
     Route: 041
  4. LEVOLEUCOVORIN CALCIUM [Suspect]
     Active Substance: LEVOLEUCOVORIN CALCIUM
     Indication: Rectal cancer
     Dosage: UNK UNK,QD
     Route: 041
  5. LEVOLEUCOVORIN CALCIUM [Suspect]
     Active Substance: LEVOLEUCOVORIN CALCIUM
     Dosage: UNK UNK,QD
     Route: 041
  6. LEVOLEUCOVORIN CALCIUM [Suspect]
     Active Substance: LEVOLEUCOVORIN CALCIUM
     Dosage: UNK UNK,QD
     Route: 041
  7. FLUOROURACIL [Concomitant]
     Active Substance: FLUOROURACIL
     Dosage: UNK

REACTIONS (3)
  - Premature rupture of membranes [Unknown]
  - Spinal fracture [Unknown]
  - Maternal exposure during pregnancy [Unknown]
